FAERS Safety Report 4391624-9 (Version None)
Quarter: 2004Q3

REPORT INFORMATION
  Report Type: 
  Country: None (occurrence: None)
  Receive Date: 20040701
  Receipt Date: 20040610
  Transmission Date: 20050211
  Serious: Yes (Other)
  Sender: FDA-Public Use
  Company Number: USA040669730

PATIENT
  Age: 63 Year
  Sex: Male

DRUGS (2)
  1. HUMULIN L [Suspect]
     Indication: DIABETES MELLITUS
     Dates: end: 20040101
  2. HUMULIN N [Suspect]
     Indication: DIABETES MELLITUS
     Dosage: 100 U DAY
     Dates: start: 20040101

REACTIONS (4)
  - BLINDNESS [None]
  - BLOOD GLUCOSE FLUCTUATION [None]
  - GLAUCOMA [None]
  - MEDICATION ERROR [None]
